FAERS Safety Report 20355890 (Version 1)
Quarter: 2022Q1

REPORT INFORMATION
  Report Type: Spontaneous
  Country: US (occurrence: None)
  Receive Date: 20220119
  Receipt Date: 20220119
  Transmission Date: 20220423
  Serious: Yes (Disabling)
  Sender: FDA-Public Use
  Company Number: None

PATIENT
  Age: 27 Year
  Sex: Female
  Weight: 54 kg

DRUGS (1)
  1. MINOCYCLINE [Suspect]
     Active Substance: MINOCYCLINE HYDROCHLORIDE
     Indication: Acne
     Dosage: FREQUENCY : TWICE A DAY;?
     Route: 048
     Dates: start: 20180502, end: 20210601

REACTIONS (7)
  - Butterfly rash [None]
  - Fatigue [None]
  - Arthritis [None]
  - Musculoskeletal stiffness [None]
  - Erythema [None]
  - Poor peripheral circulation [None]
  - Complement factor abnormal [None]

NARRATIVE: CASE EVENT DATE: 20180606
